FAERS Safety Report 15792829 (Version 3)
Quarter: 2022Q2

REPORT INFORMATION
  Report Type: Other
  Country: BE (occurrence: BE)
  Receive Date: 20190107
  Receipt Date: 20220503
  Transmission Date: 20220720
  Serious: Yes (Life-Threatening, Other)
  Sender: FDA-Public Use
  Company Number: BE-EMA-DD-20181214-SAHU_K-173453

PATIENT
  Age: 27 Year
  Sex: Female

DRUGS (1)
  1. FLUOXETINE [Suspect]
     Active Substance: FLUOXETINE HYDROCHLORIDE
     Indication: Depression
     Dosage: 20 MG, QD
     Route: 065

REACTIONS (3)
  - Platelet disorder [Recovered/Resolved]
  - Haematoma [Recovered/Resolved]
  - Ecchymosis [Recovered/Resolved]
